FAERS Safety Report 7519981-2 (Version None)
Quarter: 2011Q2

REPORT INFORMATION
  Report Type: 
  Country: None (occurrence: None)
  Receive Date: 20110602
  Receipt Date: 20110524
  Transmission Date: 20111010
  Serious: Yes (Other)
  Sender: FDA-Public Use
  Company Number: US-CEPHALON-2010005611

PATIENT
  Sex: Female
  Weight: 74 kg

DRUGS (3)
  1. ACTIQ [Suspect]
     Indication: PAIN
     Route: 002
     Dates: start: 20000101, end: 20090101
  2. ACTIQ [Suspect]
     Indication: INTERVERTEBRAL DISC DEGENERATION
  3. DURAGESIC-100 [Concomitant]

REACTIONS (3)
  - ORAL SURGERY [None]
  - TOOTH DISORDER [None]
  - GINGIVAL EROSION [None]
